FAERS Safety Report 10205454 (Version 2)
Quarter: 2014Q2

REPORT INFORMATION
  Report Type: Report from Study
  Country: ES (occurrence: ES)
  Receive Date: 20140529
  Receipt Date: 20140529
  Transmission Date: 20141212
  Serious: Yes (Death, Hospitalization, Other)
  Sender: FDA-Public Use
  Company Number: ES-GILEAD-2012-0065662

PATIENT
  Age: 24 Year
  Sex: Female
  Weight: 58 kg

DRUGS (7)
  1. AMBRISENTAN [Suspect]
     Indication: PULMONARY ARTERIAL HYPERTENSION
     Dosage: UNK UNK, QD
     Route: 048
     Dates: start: 20110331, end: 20121128
  2. TADALAFIL [Suspect]
     Indication: PULMONARY ARTERIAL HYPERTENSION
     Dosage: UNK, QD
     Route: 048
     Dates: start: 20110331, end: 20121128
  3. SINTROM [Concomitant]
  4. ORFIDAL [Concomitant]
  5. MISOPROSTOL [Concomitant]
     Indication: ABORTION INDUCED
     Dosage: 600 MG, UNK
     Route: 048
     Dates: start: 20121207, end: 20121208
  6. DEXKETOPROFEN [Concomitant]
     Indication: PAIN
  7. PEPCIDINE [Concomitant]
     Indication: PAIN

REACTIONS (3)
  - Death [Fatal]
  - Exposure during pregnancy [Unknown]
  - Abortion induced [Unknown]
